FAERS Safety Report 8768273 (Version 1)
Quarter: 2012Q4

REPORT INFORMATION
  Report Type: 
  Country: JP (occurrence: JP)
  Receive Date: 20120905
  Receipt Date: 20120905
  Transmission Date: 20130627
  Serious: Yes (Hospitalization)
  Sender: FDA-Public Use
  Company Number: JP-ROCHE-1108740

PATIENT
  Age: 60 Year
  Sex: Male
  Weight: 72 kg

DRUGS (11)
  1. AVASTIN [Suspect]
     Indication: RECTAL CANCER METASTATIC
     Route: 041
     Dates: start: 20110208, end: 20110322
  2. AVASTIN [Suspect]
     Indication: RECTAL CANCER METASTATIC
     Route: 041
     Dates: start: 20110831, end: 20120113
  3. AVASTIN [Suspect]
     Indication: RECTAL CANCER METASTATIC
     Route: 041
     Dates: start: 20120203, end: 20120511
  4. XELODA [Concomitant]
     Indication: RECTAL CANCER METASTATIC
     Dosage: It is one administering weekly holiday medicine for uncertain dosage and two 
weeks.
     Route: 048
     Dates: start: 20110117, end: 2011
  5. XELODA [Concomitant]
     Indication: RECTAL CANCER METASTATIC
     Dosage: It is one administering weekly holiday medicine for uncertain dosage and two 
weeks.
     Route: 048
     Dates: start: 20110831, end: 201201
  6. ELPLAT [Concomitant]
     Indication: RECTAL CANCER METASTATIC
     Dosage: Dosage is uncertain.
     Route: 041
     Dates: start: 20110117, end: 20110622
  7. ELPLAT [Concomitant]
     Indication: RECTAL CANCER METASTATIC
     Dosage: Dosage is uncertain.
     Route: 041
     Dates: start: 20110831, end: 20120113
  8. LEVOFOLINATE [Concomitant]
     Indication: RECTAL CANCER METASTATIC
     Dosage: Dosage is uncertain.
     Route: 041
     Dates: start: 20120203, end: 20120511
  9. 5-FU [Concomitant]
     Indication: RECTAL CANCER METASTATIC
     Dosage: Dosage is uncertain.
     Route: 040
     Dates: start: 20120203, end: 20120511
  10. 5-FU [Concomitant]
     Indication: RECTAL CANCER METASTATIC
     Dosage: Dosage is uncertain.
     Route: 041
     Dates: start: 20120203, end: 201205
  11. IRINOTECAN HYDROCHLORIDE TRIHYDRATE [Concomitant]
     Indication: RECTAL CANCER METASTATIC
     Dosage: Dosage is uncertain.
     Route: 041
     Dates: start: 20120203, end: 20120511

REACTIONS (1)
  - Interstitial lung disease [Recovered/Resolved]
